FAERS Safety Report 10885190 (Version 1)
Quarter: 2015Q1

REPORT INFORMATION
  Report Type: Spontaneous
  Country: US (occurrence: US)
  Receive Date: 20150304
  Receipt Date: 20150304
  Transmission Date: 20150721
  Serious: Yes (Death)
  Sender: FDA-Public Use
  Company Number: US-BANPHARM-20153609

PATIENT
  Age: 44 Year
  Sex: Female

DRUGS (7)
  1. GABAPENTIN. [Suspect]
     Active Substance: GABAPENTIN
  2. ALPRAZOLAM. [Suspect]
     Active Substance: ALPRAZOLAM
  3. DIPHENHYDRAMINE UNKNOWN PRODUCT [Suspect]
     Active Substance: DIPHENHYDRAMINE
  4. AMITRIPTYLINE [Suspect]
     Active Substance: AMITRIPTYLINE
  5. QUETIAPINE [Suspect]
     Active Substance: QUETIAPINE
  6. COCAINE [Suspect]
     Active Substance: COCAINE
  7. CLONIDINE. [Suspect]
     Active Substance: CLONIDINE

REACTIONS (2)
  - Completed suicide [Fatal]
  - Exposure via ingestion [None]
